FAERS Safety Report 21774583 (Version 6)
Quarter: 2023Q4

REPORT INFORMATION
  Report Type: Spontaneous
  Country: US (occurrence: US)
  Receive Date: 20221224
  Receipt Date: 20231208
  Transmission Date: 20240109
  Serious: No
  Sender: FDA-Public Use
  Company Number: US-UNITED THERAPEUTICS-UNT-2022-031627

PATIENT
  Age: 61 Year
  Sex: Female
  Weight: 83.447 kg

DRUGS (9)
  1. REMODULIN [Suspect]
     Active Substance: TREPROSTINIL
     Indication: Pulmonary arterial hypertension
     Dosage: UNK, CONTINUING
     Route: 058
     Dates: start: 20221213
  2. REMODULIN [Suspect]
     Active Substance: TREPROSTINIL
     Dosage: 0.007 ?G/KG, CONTINUING (SELF-FILLED WITH 2.9ML PER CASSETTE AT PUMP RATE 34 MCL/HOUR)
     Route: 058
     Dates: start: 202212
  3. REMODULIN [Suspect]
     Active Substance: TREPROSTINIL
     Dosage: UNK, (AT PUMP RATE 44 MCL/HOUR)  CONTINUING
     Route: 058
     Dates: start: 202212
  4. REMODULIN [Suspect]
     Active Substance: TREPROSTINIL
     Dosage: 0.01 ?G/KG (SELF-FILLED CASSETTE WITH 3 ML PER CASSETTE; AT REMUNITY PUMP RATE OF 49 MCL PER HOUR),
     Route: 058
  5. REMODULIN [Suspect]
     Active Substance: TREPROSTINIL
     Indication: Pulmonary arterial hypertension
     Dosage: 0.025 ?G/KG (SELF FILLED REMUNITY WITH 2.3 ML/CASSETTE AT PUMP RATE 25 MCL/HOUR), CONTINUING
     Route: 058
     Dates: start: 20230522
  6. REMODULIN [Suspect]
     Active Substance: TREPROSTINIL
     Dosage: UNK, CONTINUING
     Route: 058
  7. UPTRAVI [Concomitant]
     Active Substance: SELEXIPAG
     Indication: Product used for unknown indication
     Dosage: 200 MCG
     Route: 065
     Dates: end: 20221218
  8. TADALAFIL [Concomitant]
     Active Substance: TADALAFIL
     Indication: Product used for unknown indication
     Dosage: UNK
     Route: 065
  9. AMBRISENTAN [Concomitant]
     Active Substance: AMBRISENTAN
     Indication: Product used for unknown indication
     Dosage: UNK
     Route: 065

REACTIONS (14)
  - Headache [Unknown]
  - Flushing [Unknown]
  - Infusion site warmth [Unknown]
  - Hyperhidrosis [Unknown]
  - Cold sweat [Unknown]
  - Device infusion issue [Unknown]
  - Infusion site haemorrhage [Unknown]
  - Infusion site pain [Unknown]
  - Dry mouth [Unknown]
  - Pain in jaw [Unknown]
  - Myalgia [Unknown]
  - Arthralgia [Unknown]
  - Pain in extremity [Not Recovered/Not Resolved]
  - Limb discomfort [Not Recovered/Not Resolved]

NARRATIVE: CASE EVENT DATE: 20221201
